FAERS Safety Report 4275185-0 (Version None)
Quarter: 2004Q1

REPORT INFORMATION
  Report Type: 
  Country: None (occurrence: None)
  Receive Date: 20040116
  Receipt Date: 20040109
  Transmission Date: 20041129
  Serious: Yes (Other)
  Sender: FDA-Public Use
  Company Number: 2004-01-0265

PATIENT
  Age: 28 Year
  Sex: Male
  Weight: 85 kg

DRUGS (1)
  1. NASONEX [Suspect]
     Indication: NASAL CONGESTION
     Dosage: 2 SPRAYS NASAL SPRAY
     Dates: start: 20031126, end: 20031216

REACTIONS (4)
  - DYSPNOEA [None]
  - OROPHARYNGEAL SWELLING [None]
  - RASH MACULAR [None]
  - SWELLING FACE [None]
